FAERS Safety Report 12099603 (Version 1)
Quarter: 2016Q1

REPORT INFORMATION
  Report Type: Spontaneous
  Country: US (occurrence: None)
  Receive Date: 20160219
  Receipt Date: 20160219
  Transmission Date: 20160526
  Serious: No
  Sender: FDA-Public Use
  Company Number: None

PATIENT

DRUGS (1)
  1. ADDERALL [Suspect]
     Active Substance: AMPHETAMINE ASPARTATE\AMPHETAMINE SULFATE\DEXTROAMPHETAMINE SACCHARATE\DEXTROAMPHETAMINE SULFATE

REACTIONS (8)
  - Major depression [None]
  - Mania [None]
  - Inappropriate schedule of drug administration [None]
  - Drug dispensing error [None]
  - Insomnia [None]
  - Delirium [None]
  - Loss of employment [None]
  - Impaired work ability [None]

NARRATIVE: CASE EVENT DATE: 2015
